FAERS Safety Report 9994193 (Version 1)
Quarter: 2014Q1

REPORT INFORMATION
  Report Type: Spontaneous
  Country: US (occurrence: US)
  Receive Date: 20140310
  Receipt Date: 20140310
  Transmission Date: 20141002
  Serious: Yes (Hospitalization)
  Sender: FDA-Public Use
  Company Number: US-ROCHE-1362897

PATIENT
  Sex: Female
  Weight: 70.37 kg

DRUGS (1)
  1. XELODA [Suspect]
     Indication: PANCREATIC CARCINOMA
     Route: 048
     Dates: start: 20140108

REACTIONS (2)
  - Back pain [Recovered/Resolved]
  - Inflammation [Recovered/Resolved]
